FAERS Safety Report 23876933 (Version 1)
Quarter: 2024Q2

REPORT INFORMATION
  Report Type: Spontaneous
  Country: US (occurrence: US)
  Receive Date: 20240521
  Receipt Date: 20240521
  Transmission Date: 20240716
  Serious: Yes (Other)
  Sender: FDA-Public Use
  Company Number: US-BRISTOL-MYERS SQUIBB COMPANY-2024-077216

PATIENT
  Age: 83 Year
  Sex: Male
  Weight: 62.6 kg

DRUGS (11)
  1. ELIQUIS [Suspect]
     Active Substance: APIXABAN
     Indication: Deep vein thrombosis
     Route: 048
     Dates: start: 202205
  2. ELIQUIS [Suspect]
     Active Substance: APIXABAN
     Indication: Pulmonary embolism
  3. EFFEXOR [Concomitant]
     Active Substance: VENLAFAXINE HYDROCHLORIDE
     Indication: Product used for unknown indication
     Dosage: 24 HR CAPSULE
  4. ALDACTONE [Concomitant]
     Active Substance: SPIRONOLACTONE
     Indication: Product used for unknown indication
     Dosage: DAILY
     Route: 048
  5. PROTONIX [Concomitant]
     Active Substance: PANTOPRAZOLE SODIUM
     Indication: Dyspepsia
     Route: 048
  6. PROTONIX [Concomitant]
     Active Substance: PANTOPRAZOLE SODIUM
     Indication: Gastric ulcer
  7. XALATAN [Concomitant]
     Active Substance: LATANOPROST
     Indication: Product used for unknown indication
     Dosage: 0.005 % OPHTHALMIC SOLUTION?1 DROP, NIGHTLY AT BEDTIME. CONTACT LENSES SHOULD BE REMOVED PRIOR ADMIN
  8. ASPIRIN [Concomitant]
     Active Substance: ASPIRIN
     Indication: Deep vein thrombosis
  9. ASPIRIN [Concomitant]
     Active Substance: ASPIRIN
     Indication: Pulmonary embolism
  10. PLAVIX [Concomitant]
     Active Substance: CLOPIDOGREL BISULFATE
     Indication: Deep vein thrombosis
  11. PLAVIX [Concomitant]
     Active Substance: CLOPIDOGREL BISULFATE
     Indication: Pulmonary embolism

REACTIONS (8)
  - Pleural effusion [Unknown]
  - Pneumonia [Unknown]
  - Cardiac failure acute [Unknown]
  - Coronary artery disease [Unknown]
  - Acute kidney injury [Unknown]
  - Ischaemic cardiomyopathy [Unknown]
  - Acquired ATTR amyloidosis [Unknown]
  - Back pain [Unknown]
